FAERS Safety Report 18741190 (Version 2)
Quarter: 2022Q1

REPORT INFORMATION
  Report Type: Spontaneous
  Country: US (occurrence: US)
  Receive Date: 20210114
  Receipt Date: 20220311
  Transmission Date: 20220423
  Serious: Yes (Other)
  Sender: FDA-Public Use
  Company Number: US-GLAXOSMITHKLINE-US2020GSK258120

PATIENT
  Sex: Male

DRUGS (8)
  1. RANITIDINE [Suspect]
     Active Substance: RANITIDINE
     Indication: Abdominal discomfort
     Dosage: 25 MG PRESCRIPTION
     Route: 065
     Dates: start: 201505, end: 202003
  2. RANITIDINE [Suspect]
     Active Substance: RANITIDINE
     Dosage: UNKNOWN AT THIS TIME PRESCRIPTION
     Route: 065
     Dates: start: 201505, end: 202003
  3. RANITIDINE [Suspect]
     Active Substance: RANITIDINE
     Dosage: 25 MG PRESCRIPTION
     Route: 065
     Dates: start: 201505, end: 202003
  4. RANITIDINE [Suspect]
     Active Substance: RANITIDINE
     Dosage: UNK, QD
     Route: 065
     Dates: start: 201505, end: 202003
  5. RANITIDINE [Suspect]
     Active Substance: RANITIDINE
     Indication: Abdominal discomfort
     Dosage: 25 MG PRESCRIPTION
     Route: 065
     Dates: start: 201505, end: 202003
  6. RANITIDINE [Suspect]
     Active Substance: RANITIDINE
     Dosage: UNKNOWN AT THIS TIME PRESCRIPTION
     Route: 065
     Dates: start: 201505, end: 202003
  7. RANITIDINE [Suspect]
     Active Substance: RANITIDINE
     Dosage: 25 MG PRESCRIPTION
     Route: 065
     Dates: start: 201505, end: 202003
  8. RANITIDINE [Suspect]
     Active Substance: RANITIDINE
     Dosage: UNK, QD
     Route: 065
     Dates: start: 201505, end: 202003

REACTIONS (1)
  - Renal cancer [Unknown]
